FAERS Safety Report 8979466 (Version 1)
Quarter: 2012Q4

REPORT INFORMATION
  Report Type: 
  Country: US (occurrence: US)
  Receive Date: 20121221
  Receipt Date: 20121221
  Transmission Date: 20130627
  Serious: No
  Sender: FDA-Public Use
  Company Number: US-AMGEN-USASP2012062919

PATIENT
  Age: 67 Year
  Sex: Female

DRUGS (11)
  1. PROLIA [Suspect]
     Indication: OSTEOPOROSIS POSTMENOPAUSAL
     Dosage: UNK
     Dates: start: 20120305
  2. PROLIA [Suspect]
     Dosage: UNK
     Dates: start: 20121025
  3. VITAMIN D                          /00107901/ [Concomitant]
     Dosage: UNK
  4. ADVAIR [Concomitant]
     Dosage: UNK UNK, qd
  5. VITAMIN B [Concomitant]
     Dosage: UNK
  6. ALLEGRA [Concomitant]
     Dosage: UNK
  7. ANTIHYPERTENSIVES [Concomitant]
     Indication: BLOOD PRESSURE ABNORMAL
     Dosage: UNK
  8. AMLODIPINE [Concomitant]
     Dosage: UNK
     Dates: start: 2012
  9. BENICAR [Concomitant]
     Dosage: UNK
     Dates: end: 2012
  10. MULTIVITAMIN                       /00097801/ [Concomitant]
     Dosage: UNK
  11. PENTASA [Concomitant]
     Dosage: UNK

REACTIONS (5)
  - Alopecia [Unknown]
  - Sciatica [Unknown]
  - Pain [Unknown]
  - Arthralgia [Unknown]
  - Pain in extremity [Unknown]
